FAERS Safety Report 9255772 (Version 3)
Quarter: 2013Q2

REPORT INFORMATION
  Report Type: Spontaneous
  Country: JP (occurrence: None)
  Receive Date: 20130418
  Receipt Date: 20130521
  Transmission Date: 20140414
  Serious: Yes (Other)
  Sender: FDA-Public Use
  Company Number: JP-011432

PATIENT
  Age: 69 Year
  Sex: Male
  Weight: 54.5 kg

DRUGS (9)
  1. DEGARELIX [Suspect]
     Indication: PROSTATE CANCER
     Route: 058
  2. AMARYL [Concomitant]
  3. GLACTIV [Concomitant]
  4. METGLUCO [Concomitant]
  5. GASTER [Concomitant]
  6. MUCOSTA [Concomitant]
  7. MEVALOTIN [Concomitant]
  8. PLETAAL [Concomitant]
  9. MEDET [Concomitant]

REACTIONS (3)
  - Diabetes mellitus [None]
  - Condition aggravated [None]
  - Intentional drug misuse [None]
